FAERS Safety Report 25739183 (Version 2)
Quarter: 2025Q3

REPORT INFORMATION
  Report Type: Spontaneous
  Country: AU (occurrence: AU)
  Receive Date: 20250829
  Receipt Date: 20250913
  Transmission Date: 20251020
  Serious: Yes (Hospitalization, Disabling, Other)
  Sender: ACCORD
  Company Number: AU-Accord-501652

PATIENT
  Age: 40 Year
  Sex: Female

DRUGS (5)
  1. MYCOPHENOLATE MOFETIL [Suspect]
     Active Substance: MYCOPHENOLATE MOFETIL
     Indication: Immunosuppression
  2. TACROLIMUS [Suspect]
     Active Substance: TACROLIMUS
     Indication: Immunosuppression
     Dosage: TARGET TROUGH LEVEL 6-8 MICROG/L
  3. PREDNISOLONE [Suspect]
     Active Substance: PREDNISOLONE
     Indication: Eye inflammation
  4. PREDNISOLONE [Suspect]
     Active Substance: PREDNISOLONE
     Indication: Immunosuppressant drug therapy
  5. PREDNISOLONE [Suspect]
     Active Substance: PREDNISOLONE
     Indication: Eye inflammation
     Dosage: COMMENCED ON D + 15

REACTIONS (7)
  - Dengue viraemia [Recovered/Resolved]
  - Maculopathy [Recovered/Resolved]
  - Retinal vasculitis [Recovered/Resolved]
  - Retinal haemorrhage [Recovered/Resolved]
  - Cystoid macular oedema [Recovered/Resolved]
  - Decreased immune responsiveness [Recovering/Resolving]
  - Retinal degeneration [Recovering/Resolving]
